FAERS Safety Report 23384139 (Version 1)
Quarter: 2024Q1

REPORT INFORMATION
  Report Type: Spontaneous
  Country: US (occurrence: None)
  Receive Date: 20240109
  Receipt Date: 20240109
  Transmission Date: 20240410
  Serious: Yes (Other)
  Sender: FDA-Public Use
  Company Number: None

PATIENT
  Age: 36 Year
  Sex: Male

DRUGS (1)
  1. AJOVY [Suspect]
     Active Substance: FREMANEZUMAB-VFRM
     Indication: Migraine
     Dosage: OTHER FREQUENCY : MONTHLY;?
     Route: 058
     Dates: start: 20231103, end: 20231204

REACTIONS (4)
  - Injection site vesicles [None]
  - Injection site rash [None]
  - Injection site swelling [None]
  - Weight bearing difficulty [None]

NARRATIVE: CASE EVENT DATE: 20231202
